FAERS Safety Report 6203858-9 (Version None)
Quarter: 2009Q2

REPORT INFORMATION
  Report Type: 
  Country: None (occurrence: None)
  Receive Date: 20090527
  Receipt Date: 20090513
  Transmission Date: 20091009
  Serious: Yes (Other)
  Sender: FDA-Public Use
  Company Number: JP-PFIZER INC-2009214282

PATIENT
  Age: 88 Year

DRUGS (1)
  1. ZYVOX [Suspect]
     Dosage: UNK
     Dates: start: 20090430

REACTIONS (2)
  - HYPOKALAEMIA [None]
  - HYPONATRAEMIA [None]
